FAERS Safety Report 8791742 (Version 3)
Quarter: 2013Q4

REPORT INFORMATION
  Report Type: Spontaneous
  Country: US (occurrence: US)
  Receive Date: 20120918
  Receipt Date: 20131009
  Transmission Date: 20140711
  Serious: No
  Sender: FDA-Public Use
  Company Number: US-B.I. PHARMACEUTICALS,INC./RIDGEFIELD-2012-BP-22346BP

PATIENT
  Sex: Female

DRUGS (13)
  1. SPIRIVA [Suspect]
     Indication: CHRONIC OBSTRUCTIVE PULMONARY DISEASE
     Dosage: 18 MCG
     Route: 055
     Dates: start: 2012
  2. PRIMIDONE [Concomitant]
     Indication: TREMOR
     Dosage: 50 MG
     Route: 048
  3. CITALOPRAM HYDROCHLORIDE [Concomitant]
     Dosage: 20 MG
     Route: 048
  4. SYNTHROID [Concomitant]
     Indication: THYROID DISORDER
     Dosage: 175 MCG
     Route: 048
  5. LOVASTATIN [Concomitant]
     Indication: BLOOD CHOLESTEROL INCREASED
     Dosage: 20 MG
     Route: 048
  6. PULMICORT [Concomitant]
  7. PERFOROMIST NEB [Concomitant]
  8. BUDESONIDE SUSPENSION [Concomitant]
  9. LATANOPROST [Concomitant]
     Dosage: 0.05% SOLUTION 1 DROP INTO AFFECTED EYE IN THE EVENING
  10. I CAPS [Concomitant]
  11. LUTEIN [Concomitant]
  12. ESTER-C [Concomitant]
  13. CALTRATE [Concomitant]

REACTIONS (6)
  - Feeling abnormal [Unknown]
  - Drug effect decreased [Unknown]
  - Memory impairment [Not Recovered/Not Resolved]
  - Dyspnoea [Recovered/Resolved]
  - Product quality issue [Unknown]
  - Product quality issue [Recovered/Resolved]
